FAERS Safety Report 6363837-8 (Version None)
Quarter: 2009Q3

REPORT INFORMATION
  Report Type: 
  Country: None (occurrence: None)
  Receive Date: 20090919
  Receipt Date: 20090708
  Transmission Date: 20100115
  Serious: No
  Sender: FDA-Public Use
  Company Number: US-ABBOTT-09P-163-0584624-00

PATIENT
  Sex: Female
  Weight: 88.53 kg

DRUGS (11)
  1. HUMIRA [Suspect]
     Indication: RHEUMATOID ARTHRITIS
     Route: 058
     Dates: start: 20070101
  2. HUMIRA [Suspect]
     Route: 058
     Dates: start: 20080101, end: 20090101
  3. HUMIRA [Suspect]
     Route: 058
     Dates: start: 20090101
  4. ARAVA [Concomitant]
     Indication: RHEUMATOID ARTHRITIS
  5. METFORMIN HCL [Concomitant]
     Indication: DRUG USE FOR UNKNOWN INDICATION
  6. METOPROLOL TARTRATE [Concomitant]
     Indication: BLOOD PRESSURE
  7. AMLODIPINE DESALATE [Concomitant]
     Indication: DRUG USE FOR UNKNOWN INDICATION
  8. LOVOXYL [Concomitant]
     Indication: DRUG USE FOR UNKNOWN INDICATION
  9. OMEPREZOL [Concomitant]
     Indication: DRUG USE FOR UNKNOWN INDICATION
  10. POTASIUM CHOLORIDE [Concomitant]
     Indication: DRUG USE FOR UNKNOWN INDICATION
  11. TRIAMTERENE AND HYDROCHLOROTHIAZIDE [Concomitant]
     Indication: DRUG USE FOR UNKNOWN INDICATION

REACTIONS (3)
  - CONTUSION [None]
  - DRUG DOSE OMISSION [None]
  - HERPES ZOSTER [None]
